FAERS Safety Report 11380239 (Version 2)
Quarter: 2016Q1

REPORT INFORMATION
  Report Type: Report from Study
  Country: DE (occurrence: DE)
  Receive Date: 20150814
  Receipt Date: 20160106
  Transmission Date: 20160525
  Serious: Yes (Hospitalization)
  Sender: FDA-Public Use
  Company Number: DE-ROCHE-1619790

PATIENT
  Age: 50 Year
  Sex: Female

DRUGS (7)
  1. EFEROX [Concomitant]
     Active Substance: LEVOTHYROXINE SODIUM
  2. PREDNISOLON [Concomitant]
     Active Substance: PREDNISOLONE
  3. VALSARTAN. [Concomitant]
     Active Substance: VALSARTAN
  4. TOCILIZUMAB [Suspect]
     Active Substance: TOCILIZUMAB
     Indication: RHEUMATOID ARTHRITIS
     Route: 058
     Dates: end: 20150409
  5. OMEPRAZOL [Concomitant]
     Active Substance: OMEPRAZOLE
  6. PANKREATIN [Concomitant]
     Active Substance: PANCRELIPASE
  7. DEKRISTOL [Concomitant]
     Active Substance: CHOLECALCIFEROL

REACTIONS (5)
  - Cough [Recovered/Resolved]
  - Malaise [Recovered/Resolved]
  - Dyspnoea [Recovered/Resolved]
  - Headache [Recovered/Resolved]
  - Nausea [Recovered/Resolved]

NARRATIVE: CASE EVENT DATE: 20150327
